FAERS Safety Report 25900394 (Version 1)
Quarter: 2025Q4

REPORT INFORMATION
  Report Type: Spontaneous
  Country: US (occurrence: US)
  Receive Date: 20251009
  Receipt Date: 20251009
  Transmission Date: 20260117
  Serious: Yes (Other)
  Sender: CATALYST PHARMA
  Company Number: US-CATALYST PHARMACEUTICALS, INC-US-CATA-25-01368

PATIENT
  Age: 20 Year
  Sex: Female
  Weight: 81.633 kg

DRUGS (16)
  1. FIRDAPSE [Suspect]
     Active Substance: AMIFAMPRIDINE PHOSPHATE
     Indication: Myasthenic syndrome
     Dosage: HALF A TABLET THREE TIMES A DAY
     Route: 065
     Dates: start: 20250821, end: 20250823
  2. ALLEGRA [Concomitant]
     Active Substance: FEXOFENADINE HYDROCHLORIDE
     Indication: Hypersensitivity
     Dosage: 180 MG DAILY
     Route: 065
  3. CANNABIS SATIVA SUBSP. INDICA TOP [Concomitant]
     Active Substance: CANNABIS SATIVA SUBSP. INDICA TOP
     Indication: Anxiety
     Dosage: 1 GUMMY AS NEEDED
     Route: 065
  4. CORLANOR [Concomitant]
     Active Substance: IVABRADINE HYDROCHLORIDE
     Indication: Autonomic nervous system imbalance
     Dosage: 5 MG DAILY
     Route: 065
  5. BENADRYL [Concomitant]
     Active Substance: DIPHENHYDRAMINE HYDROCHLORIDE
     Indication: Anxiety
     Dosage: 50 MG AS NEEDED
     Route: 065
  6. LITHIUM OROTATE [Concomitant]
     Active Substance: LITHIUM OROTATE
     Indication: Depression
     Dosage: 1 MG DAILY
     Route: 065
  7. LYRICA [Concomitant]
     Active Substance: PREGABALIN
     Indication: Pain
     Dosage: 25 MG DAILY
     Route: 065
  8. MAGNESIUM GLYCINATE [Concomitant]
     Active Substance: MAGNESIUM GLYCINATE
     Indication: Supplementation therapy
     Dosage: 120 MG DAILY
     Route: 065
  9. MOBIC [Concomitant]
     Active Substance: MELOXICAM
     Indication: Pain
     Dosage: 15 MG DAILY
     Route: 065
  10. NALTREX [Concomitant]
     Indication: Autonomic nervous system imbalance
     Dosage: 1.5 MG CAPSULE DAILY
     Route: 065
  11. PEPCID [Concomitant]
     Active Substance: FAMOTIDINE
     Indication: Gastrooesophageal reflux disease
     Dosage: 20 MG TWICE DAILY
     Route: 065
  12. VITAMIN D3 [Concomitant]
     Active Substance: CHOLECALCIFEROL
     Indication: Supplementation therapy
     Dosage: 25 MCG DAILY
     Route: 065
  13. SLYND [Concomitant]
     Active Substance: DROSPIRENONE
     Indication: Contraception
     Dosage: 4 MG DAILY
     Route: 065
  14. TYLENOL [Concomitant]
     Active Substance: ACETAMINOPHEN
     Indication: Pain
     Dosage: 325 MG AS NEEDED
     Route: 065
  15. UBIQUINOL [Concomitant]
     Active Substance: UBIQUINOL
     Indication: Supplementation therapy
     Dosage: 100 MG DAILY
     Route: 065
  16. XELSTRYM [Concomitant]
     Active Substance: DEXTROAMPHETAMINE
     Indication: Attention deficit hyperactivity disorder
     Dosage: 9 MG DAILY
     Route: 065

REACTIONS (4)
  - Suicidal ideation [Recovered/Resolved]
  - Fatigue [Recovered/Resolved]
  - Depression [Recovered/Resolved]
  - Treatment noncompliance [Unknown]

NARRATIVE: CASE EVENT DATE: 20250821
